FAERS Safety Report 7022645-5 (Version None)
Quarter: 2010Q3

REPORT INFORMATION
  Report Type: 
  Country: None (occurrence: None)
  Receive Date: 20100930
  Receipt Date: 20100922
  Transmission Date: 20110219
  Serious: Yes (Other)
  Sender: FDA-Public Use
  Company Number: BR-PFIZER INC-2010120758

PATIENT
  Sex: Female
  Weight: 78 kg

DRUGS (6)
  1. CHAMPIX [Suspect]
     Indication: TOBACCO USER
     Dosage: UNK
     Route: 048
  2. FUROSEMIDE [Concomitant]
     Indication: HYPERTENSION
     Dosage: 40 MG, 2X/DAY (EVERY 12 HOURS)
  3. FUROSEMIDE [Concomitant]
     Indication: FLUID RETENTION
  4. FORMOTEROL W/BUDESONIDE [Concomitant]
     Indication: BRONCHITIS
     Dosage: UNK
  5. CARVEDILOL [Concomitant]
     Indication: HYPERTENSION
     Dosage: 12.5 MG, 2X/DAY
  6. LOSARTAN [Concomitant]
     Indication: HYPERTENSION
     Dosage: 50 MG, 1X/DAY

REACTIONS (2)
  - DEPRESSED MOOD [None]
  - EMOTIONAL DISTRESS [None]
